FAERS Safety Report 17619960 (Version 2)
Quarter: 2020Q3

REPORT INFORMATION
  Report Type: Spontaneous
  Country: US (occurrence: US)
  Receive Date: 20200403
  Receipt Date: 20200731
  Transmission Date: 20201102
  Serious: No
  Sender: FDA-Public Use
  Company Number: US-009507513-2004USA000493

PATIENT
  Age: 23 Year
  Sex: Female
  Weight: 61.68 kg

DRUGS (1)
  1. NEXPLANON [Suspect]
     Active Substance: ETONOGESTREL
     Indication: CONTRACEPTION
     Dosage: 1 IMPLANT (68 MILLIGRAM) ONE TIME
     Route: 059
     Dates: start: 20190311, end: 20200311

REACTIONS (4)
  - Menstruation normal [Unknown]
  - Metrorrhagia [Unknown]
  - Vaginal haemorrhage [Unknown]
  - Menorrhagia [Recovered/Resolved]

NARRATIVE: CASE EVENT DATE: 2019
